FAERS Safety Report 16180511 (Version 1)
Quarter: 2019Q2

REPORT INFORMATION
  Report Type: Spontaneous
  Country: US (occurrence: US)
  Receive Date: 20190307
  Receipt Date: 20190307
  Transmission Date: 20190711
  Serious: Yes (Death)
  Sender: FDA-Public Use
  Company Number: None

PATIENT
  Age: 58 Year
  Sex: Female

DRUGS (3)
  1. PRILOSEC [Concomitant]
     Active Substance: OMEPRAZOLE MAGNESIUM
  2. FOLIC ACID. [Concomitant]
     Active Substance: FOLIC ACID
  3. SANCUSO [Suspect]
     Active Substance: GRANISETRON
     Indication: NEOPLASM MALIGNANT
     Route: 062
     Dates: start: 20171116

REACTIONS (1)
  - Death [None]

NARRATIVE: CASE EVENT DATE: 20190224
